FAERS Safety Report 4996466-9 (Version None)
Quarter: 2006Q2

REPORT INFORMATION
  Report Type: 
  Country: None (occurrence: None)
  Receive Date: 20060505
  Receipt Date: 20060412
  Transmission Date: 20061013
  Serious: Yes (Life-Threatening)
  Sender: FDA-Public Use
  Company Number: NL 2006 0002

PATIENT
  Age: 41 Year
  Sex: Male

DRUGS (1)
  1. DOTAREM MEGLUMINE GADOTERATE [Suspect]
     Indication: ANGIOGRAM
     Dosage: 25 ML PER DAY INTRA-VEINOUS
     Route: 042
     Dates: start: 20060410

REACTIONS (4)
  - CARDIAC FAILURE [None]
  - EPILEPSY [None]
  - LOSS OF CONSCIOUSNESS [None]
  - PROCEDURAL COMPLICATION [None]
